FAERS Safety Report 6720892-0 (Version None)
Quarter: 2010Q2

REPORT INFORMATION
  Report Type: 
  Country: None (occurrence: None)
  Receive Date: 20100506
  Receipt Date: 20100427
  Transmission Date: 20101027
  Serious: Yes (Other)
  Sender: FDA-Public Use
  Company Number: CV20100207

PATIENT
  Age: 62 Year
  Sex: Male

DRUGS (2)
  1. FUROSEMIDE [Suspect]
     Indication: HYPERCALCAEMIA
     Dosage: 0.118 MG/ML
  2. ALLOPURINOL [Concomitant]

REACTIONS (3)
  - CONDITION AGGRAVATED [None]
  - GRANULOMATOUS LIVER DISEASE [None]
  - HYPERCALCAEMIA [None]
